FAERS Safety Report 20865777 (Version 1)
Quarter: 2022Q2

REPORT INFORMATION
  Report Type: Spontaneous
  Country: ES (occurrence: ES)
  Receive Date: 20220524
  Receipt Date: 20220524
  Transmission Date: 20220721
  Serious: Yes (Hospitalization)
  Sender: FDA-Public Use
  Company Number: None

PATIENT
  Age: 79 Year
  Sex: Male

DRUGS (4)
  1. OMEPRAZOLE [Suspect]
     Active Substance: OMEPRAZOLE
     Indication: Prophylaxis against gastrointestinal ulcer
     Dosage: OMEPRAZOL (2141A), DURATION : 4 YR
     Route: 048
     Dates: start: 2018, end: 20220403
  2. ATORVASTATIN [Concomitant]
     Active Substance: ATORVASTATIN
     Indication: Dyslipidaemia
     Dosage: ATORVASTATINA (7400A), DURATION : 25 DAYS
     Route: 048
     Dates: start: 20220309, end: 20220403
  3. ATORVASTATIN [Concomitant]
     Active Substance: ATORVASTATIN
     Indication: Dyslipidaemia
     Dosage: DURATION : 4 YEARS, UNIT DOSE: 40 MG, FREQUENCY TIME : 24 HRS
     Route: 048
     Dates: start: 2018, end: 20220309
  4. FUROSEMIDE [Concomitant]
     Active Substance: FUROSEMIDE
     Dosage: FUROSEMIDA (1615A), DURATION : 1 YEAR
     Route: 048
     Dates: start: 2021, end: 20220403

REACTIONS (4)
  - Long QT syndrome [Recovered/Resolved]
  - Hypocalcaemia [Recovered/Resolved]
  - Hypomagnesaemia [Recovered/Resolved]
  - Hypokalaemia [Recovered/Resolved]

NARRATIVE: CASE EVENT DATE: 20220403
